FAERS Safety Report 11272582 (Version 1)
Quarter: 2015Q2

REPORT INFORMATION
  Report Type: Spontaneous
  Country: US (occurrence: None)
  Receive Date: 20150625
  Receipt Date: 20150625
  Transmission Date: 20150821
  Serious: No
  Sender: FDA-Public Use
  Company Number: A-US2015-115451

PATIENT
  Age: 69 Year
  Sex: Female

DRUGS (19)
  1. ALBUTEROL (SALBUTAMOL) [Concomitant]
     Active Substance: ALBUTEROL
  2. EXCEDRIN MIGRAINE (ACETYLSALICYLIC ACID, CAFFEINE, PARACETAMOL) [Concomitant]
  3. LASIX [Concomitant]
     Active Substance: FUROSEMIDE
  4. VITAMIN D (ERGOCALCIFEROL) [Concomitant]
     Active Substance: ERGOCALCIFEROL
  5. COUMADIN [Concomitant]
     Active Substance: WARFARIN SODIUM
  6. IMITREX [Concomitant]
     Active Substance: SUMATRIPTAN\SUMATRIPTAN SUCCINATE
  7. METHOCARBAMOL (METHOCARBAMOL) [Concomitant]
  8. PULMICORT TURBUHALER [Concomitant]
     Active Substance: BUDESONIDE
  9. ZOFRAN [Concomitant]
     Active Substance: ONDANSETRON HYDROCHLORIDE
  10. ZOLOFT [Concomitant]
     Active Substance: SERTRALINE HYDROCHLORIDE
  11. HYDROXYCHLOROQUINE (HYDROXYCHLOROQUINE) [Concomitant]
     Active Substance: HYDROXYCHLOROQUINE
  12. POTASSIUM (POTASSIUM) [Concomitant]
     Active Substance: POTASSIUM
  13. ALPRAZOLAM (ALPRAZOLAM) [Concomitant]
     Active Substance: ALPRAZOLAM
  14. MECLOZINE (MECLOZINE) [Concomitant]
  15. PRILOSEC (OMEPRAZOLE) [Concomitant]
     Active Substance: OMEPRAZOLE MAGNESIUM
  16. PHENERGAN WITH CODEINE (CEPHAELIS SPP. FLUID EXTRACT, CHLOROFORM, CITRIC ACID, CODEINE PHOSPATE, PROMETHAZINE HYDROCHLORIDE, SODIUM CITRATE, SULFOGAIACOL) [Concomitant]
  17. LOMOTIL (ATROPINE SULFATE, DIPHENOXYLATE HYDROCHLORIDE) [Concomitant]
  18. OPSUMIT [Suspect]
     Active Substance: MACITENTAN
     Indication: PULMONARY HYPERTENSION
     Route: 048
     Dates: start: 20150302, end: 20150321
  19. TRAVATAN (TRAVOPROST) [Concomitant]

REACTIONS (5)
  - Vomiting [None]
  - Cough [None]
  - Nausea [None]
  - Headache [None]
  - Malaise [None]

NARRATIVE: CASE EVENT DATE: 201503
